FAERS Safety Report 4752376-3 (Version None)
Quarter: 2005Q3

REPORT INFORMATION
  Report Type: 
  Country: None (occurrence: None)
  Receive Date: 20050823
  Receipt Date: 20050816
  Transmission Date: 20060218
  Serious: Yes (Death)
  Sender: FDA-Public Use
  Company Number: 2005116309

PATIENT
  Age: 55 Year
  Sex: Male

DRUGS (1)
  1. CELEBREX [Suspect]
     Indication: ARTHRITIS
     Dosage: (400 MG, 1 IN 1 D), ORAL
     Route: 048

REACTIONS (2)
  - CARDIAC DISORDER [None]
  - CHEST PAIN [None]
